FAERS Safety Report 5382103-0 (Version None)
Quarter: 2007Q3

REPORT INFORMATION
  Report Type: 
  Country: None (occurrence: None)
  Receive Date: 20070709
  Receipt Date: 20070704
  Transmission Date: 20080115
  Serious: Yes (Life-Threatening)
  Sender: FDA-Public Use
  Company Number: JP-ASTRAZENECA-2007AP04065

PATIENT
  Age: 71 Year
  Sex: Male

DRUGS (2)
  1. OMEPRAL [Suspect]
     Indication: GASTRIC ULCER
     Route: 048
     Dates: start: 20070608, end: 20070101
  2. TICLOPIDINE HCL [Suspect]
     Route: 048

REACTIONS (1)
  - DRUG ERUPTION [None]
